FAERS Safety Report 9282569 (Version 2)
Quarter: 2013Q2

REPORT INFORMATION
  Report Type: Report from Study
  Country: JP (occurrence: JP)
  Receive Date: 20130510
  Receipt Date: 20130516
  Transmission Date: 20140414
  Serious: Yes (Death)
  Sender: FDA-Public Use
  Company Number: JP-ASTELLAS-2013US004885

PATIENT
  Sex: Female
  Weight: 36 kg

DRUGS (19)
  1. ERLOTINIB TABLET [Suspect]
     Indication: ADENOCARCINOMA PANCREAS
     Dosage: 100 MG, UID/QD
     Route: 048
  2. GEMCITABINE [Concomitant]
     Indication: PRODUCT USED FOR UNKNOWN INDICATION
     Dosage: 1000 ME2, UID/QD
     Route: 042
     Dates: start: 20120706, end: 20120706
  3. GEMCITABINE [Concomitant]
     Dosage: 1000 ME2, UID/QD
     Route: 042
     Dates: start: 20120713, end: 20120713
  4. GEMCITABINE [Concomitant]
     Dosage: 1000 ME2, UID/QD
     Route: 042
     Dates: start: 20120720, end: 20120720
  5. GEMCITABINE [Concomitant]
     Dosage: 1000 ME2, UID/QD
     Route: 042
     Dates: start: 20120803, end: 20120803
  6. GEMCITABINE [Concomitant]
     Dosage: 1000 ME2, UID/QD
     Route: 042
     Dates: start: 20120810, end: 20120810
  7. GEMCITABINE [Concomitant]
     Dosage: 1000 ME2, UID/QD
     Route: 042
     Dates: start: 20120817, end: 20120817
  8. GEMCITABINE [Concomitant]
     Dosage: 1000 ME2, UID/QD
     Route: 042
     Dates: start: 20120831, end: 20120831
  9. GEMCITABINE [Concomitant]
     Dosage: 1000 ME2, UID/QD
     Route: 042
     Dates: start: 20120907, end: 20120907
  10. GEMCITABINE [Concomitant]
     Dosage: 1000 ME2, UID/QD
     Route: 042
     Dates: start: 20120914, end: 20120914
  11. GEMCITABINE [Concomitant]
     Dosage: 1000 ME2, UID/QD
     Route: 042
     Dates: start: 20120928, end: 20120928
  12. GEMCITABINE [Concomitant]
     Dosage: 1000 ME2, UID/QD
     Route: 042
     Dates: start: 20121012, end: 20121012
  13. GEMCITABINE [Concomitant]
     Dosage: 1000 ME2, UID/QD
     Route: 042
     Dates: start: 20121102, end: 20121102
  14. GEMCITABINE [Concomitant]
     Dosage: 1000 ME2, UID/QD
     Route: 042
     Dates: start: 20121109, end: 20121109
  15. GEMCITABINE [Concomitant]
     Dosage: 1000 ME2, UID/QD
     Route: 042
     Dates: start: 20121116, end: 20121116
  16. GEMCITABINE [Concomitant]
     Dosage: 1000 ME2, UID/QD
     Route: 042
     Dates: start: 20121130, end: 20121130
  17. GEMCITABINE [Concomitant]
     Dosage: 1000 ME2, UID/QD
     Route: 042
     Dates: start: 20121207, end: 20121207
  18. GEMCITABINE [Concomitant]
     Dosage: 1000 ME2, UID/QD
     Route: 042
     Dates: start: 20121214, end: 20121214
  19. OXYCONTIN [Concomitant]
     Indication: ADENOCARCINOMA PANCREAS
     Dosage: 10 MG, UID/QD
     Route: 048
     Dates: start: 20120720, end: 20130403

REACTIONS (1)
  - Malignant neoplasm progression [Fatal]
